FAERS Safety Report 23167394 (Version 1)
Quarter: 2023Q4

REPORT INFORMATION
  Report Type: Spontaneous
  Country: ES (occurrence: ES)
  Receive Date: 20231109
  Receipt Date: 20231109
  Transmission Date: 20240109
  Serious: Yes (Other)
  Sender: FDA-Public Use
  Company Number: ES-GILEAD-2023-0650487

PATIENT
  Age: 45 Year

DRUGS (1)
  1. YESCARTA [Suspect]
     Active Substance: AXICABTAGENE CILOLEUCEL
     Indication: Product used for unknown indication
     Dosage: UNK, DAY 0
     Route: 065
     Dates: start: 20210405, end: 20210405

REACTIONS (3)
  - Disease progression [Unknown]
  - Neutropenia [Unknown]
  - Arthritis [Unknown]
